FAERS Safety Report 10056720 (Version 2)
Quarter: 2014Q2

REPORT INFORMATION
  Report Type: Spontaneous
  Country: US (occurrence: US)
  Receive Date: 20140403
  Receipt Date: 20140416
  Transmission Date: 20141212
  Serious: Yes (Death)
  Sender: FDA-Public Use
  Company Number: US-FRI-1000066009

PATIENT
  Age: 89 Year
  Sex: Female
  Weight: 39 kg

DRUGS (9)
  1. NAMENDA [Suspect]
     Indication: DEMENTIA
     Dosage: 20MG
     Route: 048
     Dates: start: 200707, end: 20140215
  2. ARICEPT [Concomitant]
     Indication: DEMENTIA
     Dosage: 10MG
     Route: 048
  3. AMLODIPINE-VALSARTAN [Concomitant]
     Dosage: 10MG-160MG TABLET DAILY
     Dates: start: 20130110
  4. LEVOTHROID [Concomitant]
     Dosage: 50MCG
     Dates: start: 20131213
  5. HYDROCHLOROTHIAZIDE [Concomitant]
     Dosage: 12.5MG
  6. SIMVASTATIN [Concomitant]
     Dosage: 20MG AT BEDTIME
     Dates: start: 20121221
  7. PREMARIN [Concomitant]
     Dosage: 0.625MG
     Route: 048
     Dates: start: 20140207
  8. MIRTAZAPINE [Concomitant]
     Dosage: 15MG AT BEDTIME
     Dates: start: 20140207
  9. AMLODIPINE [Concomitant]
     Dosage: 5MG
     Route: 048
     Dates: start: 20140207

REACTIONS (1)
  - Death [Fatal]
